FAERS Safety Report 6612049-9 (Version None)
Quarter: 2010Q1

REPORT INFORMATION
  Report Type: 
  Country: None (occurrence: None)
  Receive Date: 20100303
  Receipt Date: 20100223
  Transmission Date: 20100710
  Serious: Yes (Hospitalization)
  Sender: FDA-Public Use
  Company Number: B0562044A

PATIENT
  Sex: Male

DRUGS (10)
  1. EPIVIR [Suspect]
     Indication: HIV INFECTION
     Dosage: 300MG PER DAY
     Route: 048
     Dates: start: 20050330, end: 20080215
  2. NORVIR [Suspect]
     Indication: HIV INFECTION
     Route: 048
     Dates: start: 20050330
  3. REYATAZ [Suspect]
     Indication: HIV INFECTION
     Route: 048
     Dates: start: 20050330, end: 20080215
  4. VIREAD [Suspect]
     Indication: HIV INFECTION
     Route: 048
     Dates: start: 20050330, end: 20080215
  5. LEXIVA [Concomitant]
     Indication: HIV INFECTION
     Dosage: 1400MG PER DAY
     Route: 048
     Dates: start: 20080216
  6. TRUVADA [Concomitant]
     Indication: HIV INFECTION
     Route: 048
     Dates: start: 20080216
  7. STOGAR [Concomitant]
     Dosage: 10MG TWICE PER DAY
     Route: 048
     Dates: end: 20080215
  8. PARIET [Concomitant]
     Dosage: 10MG PER DAY
     Route: 048
     Dates: start: 20080216
  9. RECOMBINATE [Concomitant]
     Indication: FACTOR VIII DEFICIENCY
     Dates: end: 20070720
  10. UNSPECIFIED DRUG [Concomitant]
     Indication: FACTOR VIII DEFICIENCY
     Dates: start: 20070721

REACTIONS (3)
  - FAT TISSUE INCREASED [None]
  - MELAENA [None]
  - VARICES OESOPHAGEAL [None]
